FAERS Safety Report 4279888-3 (Version None)
Quarter: 2004Q1

REPORT INFORMATION
  Report Type: 
  Country: None (occurrence: None)
  Receive Date: 20040126
  Receipt Date: 20040126
  Transmission Date: 20041129
  Serious: Yes (Disabling)
  Sender: FDA-Public Use
  Company Number: None

PATIENT
  Age: 70 Year
  Sex: Male
  Weight: 100 kg

DRUGS (1)
  1. GENTAMICIN [Suspect]
     Indication: URINARY TRACT INFECTION
     Dosage: INJECTION 1 PER DAY FOR 5 DAYS
     Dates: start: 20000401, end: 20000405

REACTIONS (3)
  - BALANCE DISORDER [None]
  - OSCILLOPSIA [None]
  - VESTIBULAR DISORDER [None]
